FAERS Safety Report 24540211 (Version 1)
Quarter: 2024Q4

REPORT INFORMATION
  Report Type: Spontaneous
  Country: US (occurrence: None)
  Receive Date: 20241022
  Receipt Date: 20241022
  Transmission Date: 20250115
  Serious: No
  Sender: Public
  Company Number: None

PATIENT
  Age: 79 Year
  Sex: Male
  Weight: 79.2 kg

DRUGS (1)
  1. SILDENAFIL [Suspect]
     Active Substance: SILDENAFIL
     Dosage: OTHER QUANTITY : 5 TABLET(S);?
     Route: 048

REACTIONS (1)
  - Photosensitivity reaction [None]

NARRATIVE: CASE EVENT DATE: 20241022
